FAERS Safety Report 6410236-6 (Version None)
Quarter: 2009Q4

REPORT INFORMATION
  Report Type: 
  Country: None (occurrence: None)
  Receive Date: 20091022
  Receipt Date: 20091016
  Transmission Date: 20100525
  Serious: Yes (Hospitalization)
  Sender: FDA-Public Use
  Company Number: PHHO2009US10803

PATIENT
  Sex: Female

DRUGS (11)
  1. RAD 666 RAD+TAB [Interacting]
     Indication: BREAST CANCER METASTATIC
     Dosage: UNK
     Dates: start: 20090520, end: 20090901
  2. HERCEPTIN [Interacting]
     Dosage: UNK
  3. AMBIEN [Concomitant]
     Indication: BREAST CANCER METASTATIC
     Dosage: UNK
     Route: 048
     Dates: start: 20090901
  4. FERROUS SULFATE TAB [Concomitant]
  5. LISINOPRIL [Concomitant]
  6. METOPROLOL TARTRATE [Concomitant]
  7. CLONIDINE [Concomitant]
  8. M.V.I. [Concomitant]
  9. ASCORBIC ACID [Concomitant]
  10. REGLAN [Concomitant]
  11. DILAUDID [Suspect]

REACTIONS (6)
  - BLADDER DILATATION [None]
  - BLOOD AMYLASE INCREASED [None]
  - LIPASE INCREASED [None]
  - MUSCULOSKELETAL PAIN [None]
  - NEPHROLITHIASIS [None]
  - PANCREATITIS [None]
